FAERS Safety Report 5208635-3 (Version None)
Quarter: 2007Q1

REPORT INFORMATION
  Report Type: 
  Country: None (occurrence: None)
  Receive Date: 20070116
  Receipt Date: 20070105
  Transmission Date: 20070707
  Serious: Yes (Other)
  Sender: FDA-Public Use
  Company Number: PHBS2007IT00617

PATIENT
  Age: 48 Year
  Sex: Male
  Weight: 78 kg

DRUGS (8)
  1. CLOZAPINE [Suspect]
     Dosage: 600 MG/DAY
     Route: 065
  2. CLOZAPINE [Suspect]
     Dosage: 700 MG/DAY
     Route: 065
  3. CLOZAPINE [Suspect]
     Dosage: 800 MG/DAY
     Route: 065
  4. LEVOMEPROMAZINE [Suspect]
     Dosage: 50 MG/DAY
  5. VALPROIC ACID [Concomitant]
  6. LORAZEPAM [Concomitant]
  7. FLURAZEPAM [Concomitant]
  8. HALOPERIDOL [Concomitant]

REACTIONS (6)
  - AGGRESSION [None]
  - AGITATION [None]
  - DRUG INTERACTION [None]
  - DRUG LEVEL DECREASED [None]
  - HALLUCINATIONS, MIXED [None]
  - SALIVARY HYPERSECRETION [None]
